FAERS Safety Report 6279546-X (Version None)
Quarter: 2009Q3

REPORT INFORMATION
  Report Type: 
  Country: None (occurrence: None)
  Receive Date: 20090721
  Receipt Date: 20090715
  Transmission Date: 20100115
  Serious: Yes (Hospitalization)
  Sender: FDA-Public Use
  Company Number: GXKR2009DE08034

PATIENT
  Age: 75 Year
  Sex: Male
  Weight: 87 kg

DRUGS (6)
  1. ASPIRIN [Suspect]
     Indication: CORONARY ARTERY DISEASE
     Dosage: 100 MG, QD, ORAL
     Route: 048
     Dates: start: 20080901
  2. FALITHROM (NGX) (PHENOPROCOUMON) FILM-COATED TABLET, 3MG [Suspect]
     Indication: ATRIAL FIBRILLATION
     Dosage: 3
     Dates: start: 20080901, end: 20081204
  3. METOPROLOL (NGX) [Concomitant]
  4. ISOCOVER (CLOPIDOGREL SULFATE) FILM-COATED TABLET, 75MG [Suspect]
     Indication: CORONARY ARTERY DISEASE
     Dates: start: 20080901, end: 20081109
  5. SIMVASTATINE (NGX) (SIMVASTATIN) FILM-COATED TABLET [Suspect]
     Indication: HYPERLIPIDAEMIA
     Dosage: 40 MG, QD, ORAL
     Route: 048
     Dates: start: 20080901
  6. RAMIPRIL (NGX) [Concomitant]

REACTIONS (2)
  - DRUG INTERACTION [None]
  - OESOPHAGITIS HAEMORRHAGIC [None]
